FAERS Safety Report 4538268-3 (Version None)
Quarter: 2004Q4

REPORT INFORMATION
  Report Type: 
  Country: None (occurrence: None)
  Receive Date: 20041221
  Receipt Date: 20041213
  Transmission Date: 20050328
  Serious: Yes (Life-Threatening)
  Sender: FDA-Public Use
  Company Number: 2004AP06253

PATIENT
  Age: 50 Year
  Sex: Female

DRUGS (7)
  1. SEROQUEL [Suspect]
     Indication: DELIRIUM
     Dosage: 100 MG DAILY PO
     Route: 048
     Dates: start: 20041124, end: 20041202
  2. SEROQUEL [Suspect]
     Indication: SCHIZOPHRENIA
     Dosage: 100 MG DAILY PO
     Route: 048
     Dates: start: 20041124, end: 20041202
  3. LINTON [Concomitant]
  4. RISPERDAL [Concomitant]
  5. BIPERIDEN HYDROCHLORIDE [Concomitant]
  6. HIRNAMIN [Concomitant]
  7. VEGETAMIN B [Concomitant]

REACTIONS (4)
  - APALLIC SYNDROME [None]
  - CARDIO-RESPIRATORY ARREST [None]
  - LOSS OF CONSCIOUSNESS [None]
  - SHOCK [None]
